FAERS Safety Report 12010428 (Version 1)
Quarter: 2016Q1

REPORT INFORMATION
  Report Type: Spontaneous
  Country: US (occurrence: None)
  Receive Date: 20160204
  Receipt Date: 20160204
  Transmission Date: 20160526
  Serious: Yes (Hospitalization)
  Sender: FDA-Public Use
  Company Number: None

PATIENT
  Age: 77 Year
  Sex: Male
  Weight: 116.1 kg

DRUGS (2)
  1. WARFARIN [Suspect]
     Active Substance: WARFARIN
     Indication: DEEP VEIN THROMBOSIS
     Route: 048
     Dates: start: 20151221
  2. ENOXAPARIN [Suspect]
     Active Substance: ENOXAPARIN
     Route: 058

REACTIONS (2)
  - Abdominal wall haematoma [None]
  - Muscle haemorrhage [None]

NARRATIVE: CASE EVENT DATE: 20160108
